FAERS Safety Report 9853572 (Version 1)
Quarter: 2014Q1

REPORT INFORMATION
  Report Type: Spontaneous
  Country: FR (occurrence: FR)
  Receive Date: 20140129
  Receipt Date: 20140129
  Transmission Date: 20141002
  Serious: Yes (Hospitalization, Other)
  Sender: FDA-Public Use
  Company Number: FR-ACTAVIS-2014-00929

PATIENT
  Age: 69 Year
  Sex: Male

DRUGS (7)
  1. FLUDARABINE (UNKNOWN) [Suspect]
     Indication: CHRONIC LYMPHOCYTIC LEUKAEMIA
     Dosage: 25 MG/M2, DAILY
     Route: 042
  2. CYCLOPHOSPHAMIDE (UNKNOWN) [Suspect]
     Indication: CHRONIC LYMPHOCYTIC LEUKAEMIA
     Dosage: 250 MG/M2, DAILY
     Route: 042
  3. RITUXIMAB [Suspect]
     Indication: CHRONIC MYELOID LEUKAEMIA
     Dosage: 375 MG/M2, DAILY, ON DAY 1 OF CYCLE 1
     Route: 065
  4. RITUXIMAB [Suspect]
     Dosage: 500 MG/M^2,DAILY ON DAY 15 OF CYCLE 1 AND ON DAY 1 OF CYCLE 2
     Route: 065
  5. COTRIMOXAZOLE [Concomitant]
     Indication: ANTIBIOTIC PROPHYLAXIS
     Dosage: UNK,UNK,THRICE WEEKLY
     Route: 065
  6. VALACYCLOVIR HYDROCHLORIDE [Concomitant]
     Indication: ANTIVIRAL PROPHYLAXIS
     Dosage: UNK,UNK,BID
     Route: 065
  7. PEGFILGRASTIM [Concomitant]
     Indication: PRODUCT USED FOR UNKNOWN INDICATION
     Dosage: UNK,UNK,SINGLE
     Route: 065

REACTIONS (1)
  - Meningitis cryptococcal [Recovered/Resolved]
